FAERS Safety Report 8115579-6 (Version None)
Quarter: 2012Q1

REPORT INFORMATION
  Report Type: 
  Country: None (occurrence: None)
  Receive Date: 20120206
  Receipt Date: 20120131
  Transmission Date: 20120608
  Serious: Yes (Other)
  Sender: FDA-Public Use
  Company Number: JP-PFIZER INC-2011310961

PATIENT
  Age: 79 Year
  Sex: Female
  Weight: 41.6 kg

DRUGS (7)
  1. EPLERENONE [Suspect]
     Indication: OEDEMA PERIPHERAL
     Dosage: 50 MG/DAY
     Route: 048
     Dates: start: 20100627
  2. LASIX [Concomitant]
     Indication: PLEURAL EFFUSION
     Dosage: 20 MG, 1X/DAY
     Route: 048
     Dates: start: 20100910
  3. EPLERENONE [Interacting]
     Indication: PLEURAL EFFUSION
     Dosage: 50 MG, 2X/DAY
     Route: 048
     Dates: start: 20100910
  4. WARFARIN SODIUM [Interacting]
     Dosage: 2 MG/DAY
     Route: 048
  5. LASIX [Concomitant]
     Indication: OEDEMA
  6. WARFARIN SODIUM [Interacting]
     Indication: ATRIAL FIBRILLATION
     Dosage: 2.25 MG, UNK
     Route: 048
  7. WARFARIN SODIUM [Interacting]
     Dosage: 1.5 MG/DAY
     Route: 048
     Dates: start: 20101008

REACTIONS (2)
  - INTERNATIONAL NORMALISED RATIO INCREASED [None]
  - DRUG INTERACTION [None]
